FAERS Safety Report 19198051 (Version 1)
Quarter: 2021Q2

REPORT INFORMATION
  Report Type: Spontaneous
  Country: US (occurrence: US)
  Receive Date: 20210430
  Receipt Date: 20210430
  Transmission Date: 20210717
  Serious: Yes (Other)
  Sender: FDA-Public Use
  Company Number: US-DRREDDYS-USA/USA/21/0134964

PATIENT
  Age: 6 Year
  Sex: Female

DRUGS (3)
  1. VECURONIUM [Suspect]
     Active Substance: VECURONIUM BROMIDE
     Indication: INDUCTION OF ANAESTHESIA
  2. SUCCINYLCHOLINE CHLORIDE. [Suspect]
     Active Substance: SUCCINYLCHOLINE CHLORIDE
     Indication: INDUCTION OF ANAESTHESIA
  3. PROPOFOL INJECTABLE EMULSION [Suspect]
     Active Substance: PROPOFOL
     Indication: INDUCTION OF ANAESTHESIA

REACTIONS (1)
  - Muscular weakness [Unknown]
